FAERS Safety Report 24707082 (Version 1)
Quarter: 2024Q4

REPORT INFORMATION
  Report Type: Spontaneous
  Country: US (occurrence: None)
  Receive Date: 20241206
  Receipt Date: 20241206
  Transmission Date: 20250114
  Serious: Yes (Hospitalization)
  Sender: Public
  Company Number: None

PATIENT
  Sex: Male

DRUGS (4)
  1. NOVOSEVEN RT [Suspect]
     Active Substance: COAGULATION FACTOR VIIA RECOMBINANT HUMAN
     Indication: Coagulopathy
     Dosage: OTHER QUANTITY : 2 MG (2000 MCG);?
  2. LIDOCAINE\PRILOCAINE [Concomitant]
     Active Substance: LIDOCAINE\PRILOCAINE
  3. HEPARIN [Concomitant]
     Active Substance: HEPARIN SODIUM
  4. SOD CHLOR [Concomitant]

REACTIONS (1)
  - Dental operation [None]
